FAERS Safety Report 8391925-3 (Version None)
Quarter: 2012Q2

REPORT INFORMATION
  Report Type: 
  Country: None (occurrence: None)
  Receive Date: 20120529
  Receipt Date: 20120426
  Transmission Date: 20120825
  Serious: Yes (Hospitalization)
  Sender: FDA-Public Use
  Company Number: JP-GLAXOSMITHKLINE-B0798807A

PATIENT
  Sex: Female

DRUGS (17)
  1. CHINESE MEDICINE [Concomitant]
     Indication: GASTROINTESTINAL HYPOMOTILITY
     Dosage: 7.5G PER DAY
     Route: 048
  2. KEPPRA [Concomitant]
     Indication: EPILEPSY
     Dosage: 1000MG PER DAY
     Route: 048
     Dates: start: 20111226, end: 20111230
  3. KEPPRA [Concomitant]
     Dosage: 1500MG PER DAY
     Route: 048
     Dates: start: 20111231, end: 20120112
  4. KEPPRA [Concomitant]
     Dosage: 2.5G PER DAY
     Route: 048
     Dates: end: 20120311
  5. TEGRETOL [Suspect]
     Indication: EPILEPSY
     Dosage: 800MG PER DAY
     Route: 048
     Dates: start: 20111222, end: 20111225
  6. MYSER [Suspect]
     Indication: RASH
     Route: 061
  7. TOPSYM [Concomitant]
     Route: 061
  8. LAMICTAL [Suspect]
     Dosage: 100MG PER DAY
     Route: 048
     Dates: start: 20120201
  9. TEGRETOL [Suspect]
     Dosage: 600MG PER DAY
     Route: 048
     Dates: start: 20111231, end: 20120127
  10. FAMOTIDINE [Concomitant]
     Indication: GASTRITIS PROPHYLAXIS
     Route: 048
  11. KEPPRA [Concomitant]
     Dosage: 2G PER DAY
     Route: 048
     Dates: start: 20120113, end: 20120119
  12. KEPPRA [Concomitant]
     Dosage: 2.5G PER DAY
     Route: 048
     Dates: start: 20120120, end: 20120123
  13. KEPPRA [Concomitant]
     Dosage: 3G PER DAY
     Route: 048
     Dates: start: 20120124
  14. LAMICTAL [Suspect]
     Indication: EPILEPSY
     Dosage: 50MG PER DAY
     Route: 048
     Dates: start: 20120127, end: 20120201
  15. LAMICTAL [Suspect]
     Dosage: 200MG PER DAY
     Route: 048
     Dates: end: 20120425
  16. PHENYTOIN SODIUM CAP [Suspect]
     Indication: EPILEPSY
     Route: 048
     Dates: start: 20120113, end: 20120127
  17. TEGRETOL [Suspect]
     Dosage: 400MG PER DAY
     Route: 048
     Dates: start: 20111226, end: 20111230

REACTIONS (2)
  - SKIN DISORDER [None]
  - RASH [None]
